FAERS Safety Report 8942859 (Version 2)
Quarter: 2013Q1

REPORT INFORMATION
  Report Type: Report from Study
  Country: US (occurrence: US)
  Receive Date: 20121204
  Receipt Date: 20130104
  Transmission Date: 20140127
  Serious: Yes (Hospitalization, Other)
  Sender: FDA-Public Use
  Company Number: US-BAYER-2012-122442

PATIENT
  Age: 56 Year
  Sex: Male

DRUGS (1)
  1. BETASERON [Suspect]
     Indication: SECONDARY PROGRESSIVE MULTIPLE SCLEROSIS
     Dosage: 8 MIU EVERY THIRD DAY
     Route: 058
     Dates: start: 19940909, end: 20121004

REACTIONS (3)
  - Erectile dysfunction [Recovering/Resolving]
  - Device related infection [None]
  - Device failure [None]
